FAERS Safety Report 6261117-2 (Version None)
Quarter: 2009Q3

REPORT INFORMATION
  Report Type: 
  Country: None (occurrence: None)
  Receive Date: 20090709
  Receipt Date: 20081222
  Transmission Date: 20100115
  Serious: No
  Sender: FDA-Public Use
  Company Number: US-KINGPHARMUSA00001-K200801444

PATIENT
  Age: 67 Year
  Sex: Female
  Weight: 65.306 kg

DRUGS (3)
  1. LEVOXYL [Suspect]
     Indication: BASEDOW'S DISEASE
     Dosage: 100 MCG, QD
     Route: 048
     Dates: end: 20081217
  2. MOBIC [Concomitant]
     Dosage: 7.5 MG, QD
  3. CRESTOR [Concomitant]
     Dosage: 10 MG, QD

REACTIONS (4)
  - CHEST DISCOMFORT [None]
  - DYSPNOEA [None]
  - HEART RATE INCREASED [None]
  - HYPERTHYROIDISM [None]
